FAERS Safety Report 5070955-3 (Version None)
Quarter: 2006Q3

REPORT INFORMATION
  Report Type: 
  Country: None (occurrence: None)
  Receive Date: 20060804
  Receipt Date: 20060726
  Transmission Date: 20061208
  Serious: Yes (Hospitalization)
  Sender: FDA-Public Use
  Company Number: US-AVENTIS-200616362US

PATIENT
  Age: 94 Year
  Sex: Female

DRUGS (6)
  1. LASIX [Suspect]
     Dosage: DOSE: UNK
     Dates: end: 20060601
  2. ALPHAGAN [Suspect]
     Indication: GLAUCOMA
     Route: 031
     Dates: end: 20060101
  3. ALPHAGAN [Suspect]
     Dosage: DOSE: UNK
     Route: 031
     Dates: start: 20060101, end: 20060101
  4. COSOPT [Suspect]
     Dosage: DOSE: UNK
     Route: 047
     Dates: end: 20060101
  5. ANTIGLAUCOMA PREPARATIONS AND MIOTICS [Concomitant]
     Dosage: DOSE: UNK
     Route: 047
  6. POTASSIUM [Concomitant]
     Dosage: DOSE: UNK

REACTIONS (11)
  - BLOOD POTASSIUM DECREASED [None]
  - CONFUSIONAL STATE [None]
  - DEHYDRATION [None]
  - DIZZINESS [None]
  - DRY MOUTH [None]
  - EYE IRRITATION [None]
  - HAEMATOCRIT INCREASED [None]
  - PHOTOPHOBIA [None]
  - RED BLOOD CELL COUNT INCREASED [None]
  - STOMACH DISCOMFORT [None]
  - VISION BLURRED [None]
